FAERS Safety Report 5728105-3 (Version None)
Quarter: 2008Q2

REPORT INFORMATION
  Report Type: 
  Country: None (occurrence: None)
  Receive Date: 20080505
  Receipt Date: 20080428
  Transmission Date: 20081010
  Serious: No
  Sender: FDA-Public Use
  Company Number: US-BAXTER-2008BH004558

PATIENT
  Age: 66 Year
  Sex: Male
  Weight: 104 kg

DRUGS (4)
  1. HEPARIN SODIUM 5,000 UNITS IN DEXTROSE 5% [Suspect]
     Indication: THROMBOSIS
     Dosage: DOSE UNIT:UNKNOWN
     Route: 042
     Dates: start: 20080427
  2. HEPARIN SODIUM 5,000 UNITS IN DEXTROSE 5% [Suspect]
     Indication: PULMONARY EMBOLISM
     Dosage: DOSE UNIT:UNKNOWN
     Route: 042
     Dates: start: 20080427
  3. FRAGMIN [Suspect]
     Indication: THROMBOSIS
     Dosage: DOSE UNIT:UNKNOWN
     Route: 058
     Dates: start: 20080426
  4. FRAGMIN [Suspect]
     Indication: PULMONARY EMBOLISM
     Dosage: DOSE UNIT:UNKNOWN
     Route: 058
     Dates: start: 20080426

REACTIONS (1)
  - PRURITUS [None]
